FAERS Safety Report 6722615-8 (Version None)
Quarter: 2010Q2

REPORT INFORMATION
  Report Type: 
  Country: None (occurrence: None)
  Receive Date: 20100510
  Receipt Date: 20100416
  Transmission Date: 20101027
  Serious: No
  Sender: FDA-Public Use
  Company Number: 2010-00402

PATIENT
  Sex: Male

DRUGS (1)
  1. ALL ZICAM PRODUCTS [Suspect]
     Dosage: AS DIRECTED
     Dates: start: 20080401

REACTIONS (3)
  - AGEUSIA [None]
  - ANOSMIA [None]
  - MULTIPLE INJURIES [None]
